FAERS Safety Report 17532041 (Version 6)
Quarter: 2020Q4

REPORT INFORMATION
  Report Type: Report from Study
  Country: CA (occurrence: CA)
  Receive Date: 20200311
  Receipt Date: 20201106
  Transmission Date: 20210113
  Serious: Yes (Other)
  Sender: FDA-Public Use
  Company Number: CA-HLS-202000127

PATIENT
  Sex: Male

DRUGS (2)
  1. CLOZARIL [Suspect]
     Active Substance: CLOZAPINE
     Indication: PRODUCT USED FOR UNKNOWN INDICATION
     Route: 048
     Dates: start: 20191021
  2. LITHIUM. [Suspect]
     Active Substance: LITHIUM
     Route: 065

REACTIONS (7)
  - Bronchitis [Unknown]
  - Hallucination, auditory [Unknown]
  - Fatigue [Unknown]
  - Renal impairment [Unknown]
  - Cough [Unknown]
  - Diarrhoea [Unknown]
  - Immunodeficiency common variable [Unknown]
